FAERS Safety Report 9665267 (Version 2)
Quarter: 2014Q1

REPORT INFORMATION
  Report Type: Spontaneous
  Country: US (occurrence: US)
  Receive Date: 20131103
  Receipt Date: 20140307
  Transmission Date: 20141002
  Serious: Yes (Hospitalization)
  Sender: FDA-Public Use
  Company Number: US-UCBSA-101772

PATIENT
  Age: 57 Year
  Sex: Female
  Weight: 95.2 kg

DRUGS (4)
  1. VIMPAT [Suspect]
     Indication: CONVULSION
     Route: 048
     Dates: start: 2012
  2. TRILEPTAL [Concomitant]
  3. NEURONTIN [Concomitant]
  4. PROTONIX [Concomitant]

REACTIONS (4)
  - Malaise [Not Recovered/Not Resolved]
  - Loss of consciousness [Unknown]
  - Fall [Unknown]
  - Face injury [Unknown]
